FAERS Safety Report 7829820-8 (Version None)
Quarter: 2011Q4

REPORT INFORMATION
  Report Type: 
  Country: None (occurrence: None)
  Receive Date: 20111020
  Receipt Date: 20111020
  Transmission Date: 20120403
  Serious: Yes (Other)
  Sender: FDA-Public Use
  Company Number: None

PATIENT
  Age: 55 Year
  Sex: Female
  Weight: 122.4712 kg

DRUGS (4)
  1. CYMBALTA [Suspect]
     Indication: WEIGHT INCREASED
     Dosage: 1 PILL @ BEDTIME 1 - 1 1/2 YRS
  2. CYMBALTA [Suspect]
     Indication: HYPERHIDROSIS
     Dosage: 1 PILL @ BEDTIME 1 - 1 1/2 YRS
  3. LEXAPRO [Suspect]
     Indication: WEIGHT INCREASED
     Dosage: 1 PILL @ BEDTIME
  4. LEXAPRO [Suspect]
     Indication: MUSCULAR WEAKNESS
     Dosage: 1 PILL @ BEDTIME

REACTIONS (5)
  - SKIN ODOUR ABNORMAL [None]
  - WEIGHT INCREASED [None]
  - HYPERHIDROSIS [None]
  - VEIN DISORDER [None]
  - ABASIA [None]
